FAERS Safety Report 13567361 (Version 9)
Quarter: 2018Q3

REPORT INFORMATION
  Report Type: Spontaneous
  Country: JP (occurrence: JP)
  Receive Date: 20170522
  Receipt Date: 20180924
  Transmission Date: 20181010
  Serious: Yes (Life-Threatening, Hospitalization, Other)
  Sender: FDA-Public Use
  Company Number: JP-009507513-1703JPN003195J

PATIENT
  Age: 75 Year
  Sex: Male
  Weight: 51 kg

DRUGS (2)
  1. KEYTRUDA [Suspect]
     Active Substance: PEMBROLIZUMAB
     Dosage: 200 MG, Q3W
     Route: 041
     Dates: start: 20170418, end: 20170920
  2. KEYTRUDA [Suspect]
     Active Substance: PEMBROLIZUMAB
     Indication: SQUAMOUS CELL CARCINOMA OF LUNG
     Dosage: 200 MG, Q3W
     Route: 041
     Dates: start: 20170321, end: 20170321

REACTIONS (8)
  - Malaise [Unknown]
  - Insomnia [Recovered/Resolved]
  - Oedema peripheral [Recovering/Resolving]
  - Pyrexia [Unknown]
  - Septic shock [Recovered/Resolved]
  - Adrenal insufficiency [Not Recovered/Not Resolved]
  - Escherichia bacteraemia [Recovered/Resolved]
  - Cortisol decreased [Unknown]

NARRATIVE: CASE EVENT DATE: 20170329
